FAERS Safety Report 5922517-0 (Version None)
Quarter: 2008Q3

REPORT INFORMATION
  Report Type: 
  Country: None (occurrence: None)
  Receive Date: 20080909
  Receipt Date: 20070724
  Transmission Date: 20090109
  Serious: Yes (Hospitalization)
  Sender: FDA-Public Use
  Company Number: 163-20785-04110018

PATIENT
  Age: 68 Year
  Sex: Male
  Weight: 72.5755 kg

DRUGS (8)
  1. THALOMID [Suspect]
     Indication: MULTIPLE MYELOMA
     Dosage: 200 MG, DAILY, ORAL : 50 MG, EVERY OTHER DAY, ORAL
     Route: 048
     Dates: start: 20040610, end: 20040904
  2. THALOMID [Suspect]
     Indication: MULTIPLE MYELOMA
     Dosage: 200 MG, DAILY, ORAL : 50 MG, EVERY OTHER DAY, ORAL
     Route: 048
     Dates: end: 20070712
  3. DECADRON [Concomitant]
  4. ARANESP [Concomitant]
  5. AREDIA [Concomitant]
  6. PROCRIT [Concomitant]
  7. DYAZIDE [Concomitant]
  8. FLOMAX [Concomitant]

REACTIONS (2)
  - DEEP VEIN THROMBOSIS [None]
  - NEUROPATHY PERIPHERAL [None]
